FAERS Safety Report 14243174 (Version 1)
Quarter: 2017Q4

REPORT INFORMATION
  Report Type: Spontaneous
  Country: None (occurrence: JP)
  Receive Date: 20171201
  Receipt Date: 20171201
  Transmission Date: 20180321
  Serious: Yes (Life-Threatening, Hospitalization, Other)
  Sender: FDA-Public Use
  Company Number: JP-VIFOR (INTERNATIONAL) INC.-VIT-2017-12942

PATIENT
  Age: 85 Year
  Sex: Female

DRUGS (5)
  1. MIRCERA [Suspect]
     Active Substance: METHOXY POLYETHYLENE GLYCOL-EPOETIN BETA
     Indication: NEPHROGENIC ANAEMIA
     Dates: start: 20170220
  2. EDIROL [Suspect]
     Active Substance: ELDECALCITOL
     Indication: OSTEOPOROSIS
     Route: 048
     Dates: start: 201509, end: 20170213
  3. BONVIVA [Suspect]
     Active Substance: IBANDRONATE SODIUM
     Indication: OSTEOPOROSIS
     Route: 042
     Dates: start: 20151003, end: 20170213
  4. DENOSUMAB [Concomitant]
     Active Substance: DENOSUMAB
  5. GLAKAY [Suspect]
     Active Substance: MENATETRENONE
     Indication: PRODUCT USED FOR UNKNOWN INDICATION
     Route: 048
     Dates: start: 20150926, end: 20170213

REACTIONS (9)
  - Nephrogenic anaemia [Unknown]
  - Dizziness [Unknown]
  - Weight decreased [Unknown]
  - Somnolence [Unknown]
  - Hypercalcaemic nephropathy [Recovered/Resolved with Sequelae]
  - Chronic kidney disease [Unknown]
  - Condition aggravated [Unknown]
  - Hypercalcaemia [Recovering/Resolving]
  - Decreased appetite [Recovered/Resolved]

NARRATIVE: CASE EVENT DATE: 20161205
